FAERS Safety Report 4984603-1 (Version None)
Quarter: 2006Q2

REPORT INFORMATION
  Report Type: 
  Country: None (occurrence: None)
  Receive Date: 20060426
  Receipt Date: 20060426
  Transmission Date: 20061013
  Serious: Yes (Hospitalization)
  Sender: FDA-Public Use
  Company Number: None

PATIENT
  Age: 84 Year
  Sex: Male
  Weight: 102.8 kg

DRUGS (10)
  1. PIOGLITAZONE HCL [Suspect]
  2. GLYBURIDE [Concomitant]
  3. CLOTRIMAZOLE [Concomitant]
  4. ASPIRIN [Concomitant]
  5. FUROSEMIDE [Concomitant]
  6. LISINOPRIL [Concomitant]
  7. LOVASTATIN [Concomitant]
  8. LANCET, TECHLITE [Concomitant]
  9. POTASSIUM CL [Concomitant]
  10. ASPIRIN / DIPYRIDAMOLE [Concomitant]

REACTIONS (1)
  - CARDIAC FAILURE CONGESTIVE [None]
